FAERS Safety Report 14157147 (Version 2)
Quarter: 2018Q2

REPORT INFORMATION
  Report Type: Spontaneous
  Country: JP (occurrence: JP)
  Receive Date: 20171103
  Receipt Date: 20180412
  Transmission Date: 20180711
  Serious: Yes (Death, Hospitalization, Other)
  Sender: FDA-Public Use
  Company Number: JP-PFIZER INC-2017469640

PATIENT
  Age: 58 Year
  Sex: Female

DRUGS (1)
  1. SOMAVERT [Suspect]
     Active Substance: PEGVISOMANT
     Indication: ACROMEGALY
     Dosage: 10 MG, 3X/WEEK(MONDAY,WEDNESDAY AND FRIDAY)
     Route: 058
     Dates: end: 20170627

REACTIONS (7)
  - Pruritus [Unknown]
  - Back pain [Unknown]
  - Volvulus [Fatal]
  - Bile duct cancer [Unknown]
  - Condition aggravated [Unknown]
  - Abdominal pain [Unknown]
  - Pyrexia [Unknown]

NARRATIVE: CASE EVENT DATE: 20170629
